FAERS Safety Report 7357501-6 (Version None)
Quarter: 2011Q1

REPORT INFORMATION
  Report Type: 
  Country: None (occurrence: None)
  Receive Date: 20110307
  Receipt Date: 20101007
  Transmission Date: 20110831
  Serious: No
  Sender: FDA-Public Use
  Company Number: AEUSA201000386

PATIENT
  Age: 54 Year
  Sex: Female
  Weight: 129.7 kg

DRUGS (1)
  1. PROLASTIN-C [Suspect]
     Indication: ALPHA-1 ANTI-TRYPSIN DEFICIENCY
     Dosage: 7917 MG;QW;IV
     Route: 042
     Dates: start: 20100101, end: 20101006

REACTIONS (5)
  - RESTLESSNESS [None]
  - PRODUCT QUALITY ISSUE [None]
  - HYPERHIDROSIS [None]
  - PAIN [None]
  - FATIGUE [None]
